FAERS Safety Report 6694905-9 (Version None)
Quarter: 2010Q2

REPORT INFORMATION
  Report Type: 
  Country: None (occurrence: None)
  Receive Date: 20100423
  Receipt Date: 20100420
  Transmission Date: 20101027
  Serious: Yes (Death, Other)
  Sender: FDA-Public Use
  Company Number: US-JNJFOC-20100405342

PATIENT
  Sex: Male

DRUGS (3)
  1. FENTANYL CITRATE [Suspect]
     Indication: LUNG NEOPLASM MALIGNANT
     Route: 062
  2. FENTANYL CITRATE [Suspect]
     Indication: BACK PAIN
     Route: 062
  3. FENTANYL-100 [Suspect]
     Indication: BACK PAIN
     Route: 062

REACTIONS (4)
  - AGITATION [None]
  - DEATH [None]
  - FEELING ABNORMAL [None]
  - SUICIDAL IDEATION [None]
